FAERS Safety Report 10230017 (Version 1)
Quarter: 2014Q2

REPORT INFORMATION
  Report Type: Spontaneous
  Country: US (occurrence: US)
  Receive Date: 20140611
  Receipt Date: 20140611
  Transmission Date: 20141212
  Serious: Yes (Hospitalization)
  Sender: FDA-Public Use
  Company Number: US-ASTRAZENECA-2014SE39242

PATIENT
  Age: 41 Year
  Sex: Female
  Weight: 62.1 kg

DRUGS (8)
  1. SEROQUEL [Suspect]
     Indication: BIPOLAR DISORDER
     Dosage: HS
     Route: 048
     Dates: start: 2001, end: 2013
  2. SEROQUEL [Suspect]
     Indication: INSOMNIA
     Dosage: HS
     Route: 048
     Dates: start: 2001, end: 2013
  3. SEROQUEL [Suspect]
     Indication: BIPOLAR DISORDER
     Route: 048
     Dates: start: 2013, end: 2014
  4. SEROQUEL [Suspect]
     Indication: INSOMNIA
     Route: 048
     Dates: start: 2013, end: 2014
  5. SEROQUEL [Suspect]
     Indication: BIPOLAR DISORDER
     Route: 048
  6. SEROQUEL [Suspect]
     Indication: INSOMNIA
     Route: 048
  7. MARINOL [Suspect]
     Route: 065
  8. CHLORAL HYDRATE [Concomitant]
     Indication: INSOMNIA

REACTIONS (15)
  - Mania [Unknown]
  - Psychotic disorder [Unknown]
  - Paranoia [Unknown]
  - Adverse event [Unknown]
  - Self esteem decreased [Unknown]
  - Feeling abnormal [Not Recovered/Not Resolved]
  - Depression [Not Recovered/Not Resolved]
  - Agoraphobia [Unknown]
  - Hypothyroidism [Unknown]
  - Drug tolerance [Unknown]
  - Weight increased [Not Recovered/Not Resolved]
  - Blood cholesterol increased [Not Recovered/Not Resolved]
  - Increased appetite [Not Recovered/Not Resolved]
  - Food craving [Not Recovered/Not Resolved]
  - Off label use [Unknown]
